FAERS Safety Report 4467326-7 (Version None)
Quarter: 2004Q4

REPORT INFORMATION
  Report Type: 
  Country: None (occurrence: None)
  Receive Date: 20041004
  Receipt Date: 20040924
  Transmission Date: 20050328
  Serious: Yes (Hospitalization)
  Sender: FDA-Public Use
  Company Number: 234728K04USA

PATIENT
  Age: 28 Year
  Sex: Female

DRUGS (2)
  1. REBIF [Suspect]
     Indication: MULTIPLE SCLEROSIS
     Dosage: 44 MCG, 3 IN 1 WEEKS
     Dates: start: 20040114
  2. VITAMINS (VITAMINS) [Concomitant]

REACTIONS (16)
  - BRONCHITIS [None]
  - CONDITION AGGRAVATED [None]
  - DEPRESSION [None]
  - EAR INFECTION [None]
  - HYPOAESTHESIA [None]
  - INFLUENZA LIKE ILLNESS [None]
  - INJECTION SITE ERYTHEMA [None]
  - INJECTION SITE PAIN [None]
  - INJECTION SITE REACTION [None]
  - INJECTION SITE SWELLING [None]
  - JOINT SWELLING [None]
  - MULTIPLE SCLEROSIS [None]
  - PHARYNGITIS STREPTOCOCCAL [None]
  - POST PROCEDURAL PAIN [None]
  - SINUSITIS [None]
  - URINARY TRACT INFECTION [None]
